FAERS Safety Report 10605386 (Version 1)
Quarter: 2014Q4

REPORT INFORMATION
  Report Type: Spontaneous
  Country: CA (occurrence: CA)
  Receive Date: 20141124
  Receipt Date: 20141124
  Transmission Date: 20150529
  Serious: Yes (Hospitalization)
  Sender: FDA-Public Use
  Company Number: PHHY2014CA149829

PATIENT
  Age: 36 Year
  Sex: Female
  Weight: 61 kg

DRUGS (4)
  1. VITAMIN C [Concomitant]
     Active Substance: ASCORBIC ACID
  2. MULTI VITAMIN [Concomitant]
     Active Substance: VITAMINS
  3. OMEGA-3 ACIDS [Concomitant]
     Active Substance: OMEGA-3 FATTY ACIDS
  4. BUPROPION SANDOZ [Suspect]
     Active Substance: BUPROPION
     Dosage: 150 MG, BID
     Route: 048

REACTIONS (8)
  - Swelling face [Recovered/Resolved]
  - Dyspepsia [Recovered/Resolved]
  - Urticaria [Recovered/Resolved]
  - Chest discomfort [Recovered/Resolved]
  - Local swelling [Recovered/Resolved]
  - Lip swelling [Recovered/Resolved]
  - Abdominal distension [Recovered/Resolved]
  - Angioedema [Recovered/Resolved]
